FAERS Safety Report 4760340-3 (Version None)
Quarter: 2005Q3

REPORT INFORMATION
  Report Type: 
  Country: None (occurrence: None)
  Receive Date: 20050902
  Receipt Date: 20050727
  Transmission Date: 20060218
  Serious: Yes (Hospitalization, Other)
  Sender: FDA-Public Use
  Company Number: PHNU2005DE02695

PATIENT
  Age: 69 Year
  Sex: Female
  Weight: 75 kg

DRUGS (5)
  1. ZOMETA [Suspect]
     Indication: METASTASES TO BONE
     Dosage: 4 MG, QMO
     Route: 042
     Dates: start: 20010821, end: 20050606
  2. FEMARA [Concomitant]
     Indication: BREAST CANCER METASTATIC
     Dosage: 2.5 MG, QD
     Route: 048
     Dates: start: 20050330
  3. XELODA [Concomitant]
     Dosage: 2500 MG/M2, QD
     Route: 065
     Dates: start: 20050109, end: 20050321
  4. ISCADOR [Concomitant]
     Route: 065
     Dates: start: 20050419
  5. RADIOTHERAPY [Concomitant]
     Indication: METASTASES TO BONE
     Dosage: 33 GY
     Route: 061
     Dates: start: 20040907, end: 20041008

REACTIONS (11)
  - ACTINOMYCOSIS [None]
  - ASEPTIC NECROSIS BONE [None]
  - IMPAIRED HEALING [None]
  - INFLAMMATION [None]
  - OSTECTOMY [None]
  - OSTEOMYELITIS [None]
  - OSTEONECROSIS [None]
  - PLASTIC SURGERY [None]
  - SINUS OPERATION [None]
  - TOOTH DISORDER [None]
  - TOOTH EXTRACTION [None]
